FAERS Safety Report 11073534 (Version 1)
Quarter: 2015Q2

REPORT INFORMATION
  Report Type: Spontaneous
  Country: US (occurrence: US)
  Receive Date: 20150428
  Receipt Date: 20150428
  Transmission Date: 20150821
  Serious: Yes (Hospitalization)
  Sender: FDA-Public Use
  Company Number: US-ACORDA-ACO_24978_2010

PATIENT
  Age: 49 Year
  Sex: Male
  Weight: 96 kg

DRUGS (43)
  1. B-150 COMPLEX [Concomitant]
     Indication: ASTHENIA
     Dosage: DF
  2. SENNA LAXATIVE [Concomitant]
     Active Substance: SENNOSIDES A AND B
     Indication: CONSTIPATION
     Dosage: 5-6/DAY AS NEEDED
  3. BACLOFEN. [Concomitant]
     Active Substance: BACLOFEN
     Indication: MUSCLE RIGIDITY
     Route: 037
     Dates: start: 20100216
  4. PRILOSEC OTC [Concomitant]
     Active Substance: OMEPRAZOLE MAGNESIUM
     Indication: GASTROOESOPHAGEAL REFLUX DISEASE
     Dosage: DF
     Dates: end: 20100903
  5. ADVAIR HFA [Concomitant]
     Active Substance: FLUTICASONE PROPIONATE\SALMETEROL XINAFOATE
     Indication: ASTHMA
     Dosage: 500/50
  6. LANTUS [Concomitant]
     Active Substance: INSULIN GLARGINE
     Indication: DIABETES MELLITUS
     Dosage: 30 UNITS
  7. LYRICA [Concomitant]
     Active Substance: PREGABALIN
  8. VESICARE [Concomitant]
     Active Substance: SOLIFENACIN SUCCINATE
     Indication: INCONTINENCE
     Dates: start: 20100820
  9. BACLOFEN. [Concomitant]
     Active Substance: BACLOFEN
     Indication: MUSCULOSKELETAL STIFFNESS
     Dosage: DF
     Dates: end: 20091009
  10. PRILOSEC OTC [Concomitant]
     Active Substance: OMEPRAZOLE MAGNESIUM
     Dosage: 1
     Dates: start: 20100903
  11. NEURONTIN [Concomitant]
     Active Substance: GABAPENTIN
  12. VESICARE [Concomitant]
     Active Substance: SOLIFENACIN SUCCINATE
     Dosage: DAILY
     Dates: start: 20091009, end: 20100820
  13. GLYCOLAX [Concomitant]
     Active Substance: POLYETHYLENE GLYCOL 3350
     Indication: CONSTIPATION
     Dosage: 1-2/DAY
  14. HYDROCODONE/ACETA [Concomitant]
     Indication: PAIN
     Dosage: 5-325  AS NEEDED
  15. GABAPENTIN. [Concomitant]
     Active Substance: GABAPENTIN
     Indication: NEURALGIA
  16. AMITIZA [Suspect]
     Active Substance: LUBIPROSTONE
     Indication: COLITIS
     Dosage: WITH FOOD
     Route: 048
     Dates: start: 20100626, end: 20100805
  17. MIRALAX [Concomitant]
     Active Substance: POLYETHYLENE GLYCOL 3350
  18. AMPYRA [Suspect]
     Active Substance: DALFAMPRIDINE
     Indication: GAIT DISTURBANCE
     Dosage: 10 MG, BID
     Route: 048
     Dates: start: 20100715, end: 20100805
  19. CYMBALTA [Concomitant]
     Active Substance: DULOXETINE HYDROCHLORIDE
     Indication: DEPRESSION
  20. FLOMAX [Concomitant]
     Active Substance: TAMSULOSIN HYDROCHLORIDE
     Indication: URINARY RETENTION
     Dates: end: 20091009
  21. CLARITIN [Concomitant]
     Active Substance: LORATADINE
     Indication: MULTIPLE ALLERGIES
  22. GLYBURIDE. [Concomitant]
     Active Substance: GLYBURIDE
     Indication: DIABETES MELLITUS
  23. POTASSIUM GLUCONATE [Concomitant]
     Active Substance: POTASSIUM GLUCONATE
  24. FLUTICASONE SPRAY [Concomitant]
     Indication: MULTIPLE ALLERGIES
  25. RED YEAST RICE [Concomitant]
     Active Substance: DIETARY SUPPLEMENT
     Indication: BLOOD CHOLESTEROL
  26. MULTIVITAMINS-ONE A DAY MENS HEALTH [Concomitant]
     Indication: VITAMIN SUPPLEMENTATION
     Dosage: DF
  27. AMBIEN [Concomitant]
     Active Substance: ZOLPIDEM TARTRATE
     Indication: INSOMNIA
     Dosage: 1/NIGHT
  28. TYSABRI [Concomitant]
     Active Substance: NATALIZUMAB
     Indication: MULTIPLE SCLEROSIS
     Dosage: MONTHLY INFUSION
  29. ASPIRIN. [Concomitant]
     Active Substance: ASPIRIN
  30. FLONASE [Concomitant]
     Active Substance: FLUTICASONE PROPIONATE
  31. ZANAFLEX [Suspect]
     Active Substance: TIZANIDINE HYDROCHLORIDE
     Indication: PRODUCT USED FOR UNKNOWN INDICATION
     Dosage: UNK
     Route: 065
  32. ZANAFLEX [Suspect]
     Active Substance: TIZANIDINE HYDROCHLORIDE
  33. B-150 COMPLEX [Concomitant]
     Indication: NERVOUS SYSTEM DISORDER
     Dosage: DF
  34. LOTREL [Concomitant]
     Active Substance: AMLODIPINE BESYLATE\BENAZEPRIL HYDROCHLORIDE
     Indication: HYPERTENSION
     Dosage: 10/20 MG
  35. FLUCONAZOLE. [Concomitant]
     Active Substance: FLUCONAZOLE
     Indication: GASTROINTESTINAL FUNGAL INFECTION
     Dosage: FOR 10 DAYS
     Dates: start: 20100909
  36. FLOMAX [Concomitant]
     Active Substance: TAMSULOSIN HYDROCHLORIDE
     Dates: start: 20091009
  37. DULCOLAX [Concomitant]
     Active Substance: BISACODYL OR DOCUSATE SODIUM
  38. IPRATROPIUM [Concomitant]
     Active Substance: IPRATROPIUM
  39. AMPYRA [Suspect]
     Active Substance: DALFAMPRIDINE
     Dosage: W/WO FOOD EVERY 12 HOURS
     Route: 048
     Dates: start: 20100816
  40. DIAZEPAM. [Concomitant]
     Active Substance: DIAZEPAM
     Indication: ANXIETY
     Dosage: AS NEEDED
  41. GABAPENTIN. [Concomitant]
     Active Substance: GABAPENTIN
     Dosage: 1/NIGHT AS NEEDED
  42. FISH OIL [Concomitant]
     Active Substance: FISH OIL
     Indication: BLOOD CHOLESTEROL
  43. SODIUM DOCUSATE [Concomitant]
     Active Substance: DOCUSATE SODIUM
     Indication: CONSTIPATION
     Dosage: 2-3/DAY AS NEEDED

REACTIONS (5)
  - Renal pain [Recovered/Resolved]
  - Abdominal pain [Unknown]
  - Oesophageal infection [Unknown]
  - Abdominal distension [Unknown]
  - Nephrolithiasis [Recovered/Resolved]

NARRATIVE: CASE EVENT DATE: 20100805
